FAERS Safety Report 7199332-6 (Version None)
Quarter: 2010Q4

REPORT INFORMATION
  Report Type: 
  Country: None (occurrence: None)
  Receive Date: 20101228
  Receipt Date: 20101222
  Transmission Date: 20110411
  Serious: Yes (Hospitalization, Other)
  Sender: FDA-Public Use
  Company Number: GB-BRISTOL-MYERS SQUIBB COMPANY-15458292

PATIENT
  Sex: Male

DRUGS (1)
  1. HYDREA [Suspect]
     Dates: start: 20100101

REACTIONS (1)
  - CEREBROVASCULAR ACCIDENT [None]
